FAERS Safety Report 23949861 (Version 1)
Quarter: 2024Q2

REPORT INFORMATION
  Report Type: Spontaneous
  Country: JP (occurrence: None)
  Receive Date: 20240607
  Receipt Date: 20240607
  Transmission Date: 20240716
  Serious: Yes (Hospitalization)
  Sender: FDA-Public Use
  Company Number: 2024A064249

PATIENT
  Age: 31087 Day
  Sex: Female
  Weight: 53 kg

DRUGS (18)
  1. ONDEXXYA [Suspect]
     Active Substance: ANDEXANET ALFA
     Indication: Subarachnoid haemorrhage
     Dosage: DOSE UNKNOWN
     Route: 042
     Dates: start: 20231013, end: 20231013
  2. EDOXABAN TOSYLATE [Concomitant]
     Active Substance: EDOXABAN TOSYLATE
     Indication: Atrial fibrillation
     Dosage: DOSE UNKNOWN
     Route: 048
     Dates: start: 20231019
  3. PLAVIX [Concomitant]
     Active Substance: CLOPIDOGREL BISULFATE
     Dosage: DOSE UNKNOWN
  4. BISOPROLOL FUMARATE [Concomitant]
     Active Substance: BISOPROLOL FUMARATE
     Indication: Atrial fibrillation
     Dosage: DOSE UNKNOWN
     Route: 048
     Dates: start: 20231019, end: 20231108
  5. AMLODIPINE\TELMISARTAN [Concomitant]
     Active Substance: AMLODIPINE\TELMISARTAN
     Dosage: DOSE UNKNOWN
     Route: 048
  6. LEVETIRACETAM [Concomitant]
     Active Substance: LEVETIRACETAM
     Route: 042
     Dates: start: 20231013, end: 20231016
  7. FYCOMPA [Concomitant]
     Active Substance: PERAMPANEL
     Route: 048
     Dates: start: 20231017
  8. RABEPRAZOLE SODIUM [Concomitant]
     Active Substance: RABEPRAZOLE SODIUM
     Indication: Subarachnoid haemorrhage
     Route: 048
     Dates: start: 20231017
  9. AMLODIPINE BESYLATE\TELMISARTAN [Concomitant]
     Active Substance: AMLODIPINE BESYLATE\TELMISARTAN
     Indication: Hypertension
     Dosage: TELMISARTAN 80 MG/AMLODIPINE BESILATE COMBINED DRUG 25 MG
     Route: 048
     Dates: start: 20231019
  10. ROSUVASTATIN [Concomitant]
     Active Substance: ROSUVASTATIN
     Indication: Dyslipidaemia
     Route: 048
     Dates: start: 20231019
  11. SOLIFENACIN SUCCINATE [Concomitant]
     Active Substance: SOLIFENACIN SUCCINATE
     Indication: Hypertonic bladder
     Route: 048
     Dates: start: 20231019
  12. AMITIZA [Concomitant]
     Active Substance: LUBIPROSTONE
     Indication: Constipation
     Route: 048
     Dates: start: 20231022
  13. EDARAVONE [Concomitant]
     Active Substance: EDARAVONE
     Indication: Cerebral infarction
     Route: 042
     Dates: start: 20231023, end: 20231029
  14. OZAGREL NA [Concomitant]
     Indication: Cerebral infarction
     Route: 042
     Dates: start: 20231025, end: 20231029
  15. ENALAPRIL MALEATE [Concomitant]
     Active Substance: ENALAPRIL MALEATE
     Indication: Cerebral infarction
     Route: 042
     Dates: start: 20231025, end: 20231029
  16. CALCIUM CHLORIDE\POTASSIUM CHLORIDE\SODIUM CHLORIDE\SODIUM LACTATE [Concomitant]
     Active Substance: CALCIUM CHLORIDE\POTASSIUM CHLORIDE\SODIUM CHLORIDE\SODIUM LACTATE
  17. NICARDIPINE HYDROCHLORIDE [Concomitant]
     Active Substance: NICARDIPINE HYDROCHLORIDE
  18. DORMICUM [Concomitant]

REACTIONS (1)
  - Cerebral vasoconstriction [Recovering/Resolving]

NARRATIVE: CASE EVENT DATE: 20231023
